FAERS Safety Report 9453612 (Version 1)
Quarter: 2013Q3

REPORT INFORMATION
  Report Type: Spontaneous
  Country: FR (occurrence: FR)
  Receive Date: 20130812
  Receipt Date: 20130812
  Transmission Date: 20140515
  Serious: Yes (Other)
  Sender: FDA-Public Use
  Company Number: FR-ABBOTT-13P-056-1129968-00

PATIENT
  Age: 47 Year
  Sex: Male

DRUGS (3)
  1. NORVIR [Suspect]
     Indication: HIV INFECTION
     Route: 048
     Dates: start: 20090429
  2. REYATAZ [Suspect]
     Indication: HIV INFECTION
     Route: 048
     Dates: start: 20090429
  3. KIVEXA [Suspect]
     Indication: HIV INFECTION
     Dates: start: 20130316, end: 20130422

REACTIONS (3)
  - Irritability [Unknown]
  - Insomnia [Unknown]
  - Gastrointestinal disorder [Unknown]
